FAERS Safety Report 23387413 (Version 1)
Quarter: 2024Q1

REPORT INFORMATION
  Report Type: Spontaneous
  Country: US (occurrence: None)
  Receive Date: 20240109
  Receipt Date: 20240109
  Transmission Date: 20240409
  Serious: No
  Sender: FDA-Public Use
  Company Number: None

PATIENT
  Age: 14 Year
  Sex: Male

DRUGS (1)
  1. GENOTROPIN [Suspect]
     Active Substance: SOMATROPIN
     Indication: Hypopituitarism
     Dosage: 2.4MG 6 DAYS A WEEK SUBCUTANEOUSLY
     Route: 058
     Dates: start: 202303

REACTIONS (2)
  - Wrong device used [None]
  - Incorrect dose administered by device [None]

NARRATIVE: CASE EVENT DATE: 20240109
